FAERS Safety Report 9333640 (Version 1)
Quarter: 2013Q2

REPORT INFORMATION
  Report Type: Spontaneous
  Country: US (occurrence: US)
  Receive Date: 20130606
  Receipt Date: 20130606
  Transmission Date: 20140414
  Serious: Yes (Other)
  Sender: FDA-Public Use
  Company Number: US-INCYTE CORPORATION-2013IN001100

PATIENT
  Age: 71 Year
  Sex: Male

DRUGS (3)
  1. JAKAFI [Suspect]
     Indication: MYELOFIBROSIS
     Dosage: 20 MG, BID
     Dates: start: 20130414
  2. PROPAFENONE [Concomitant]
  3. METOPROLOL [Concomitant]

REACTIONS (8)
  - Weight decreased [Unknown]
  - Cheilosis [Unknown]
  - Tongue disorder [Unknown]
  - Muscular weakness [Unknown]
  - Muscle atrophy [Unknown]
  - Abdominal pain [Unknown]
  - Oral pain [Unknown]
  - Nasopharyngitis [Unknown]
